FAERS Safety Report 15445266 (Version 2)
Quarter: 2018Q4

REPORT INFORMATION
  Report Type: Report from Study
  Country: US (occurrence: US)
  Receive Date: 20180928
  Receipt Date: 20181114
  Transmission Date: 20190204
  Serious: No
  Sender: FDA-Public Use
  Company Number: PHEH2018US039954

PATIENT
  Sex: Female
  Weight: 100.24 kg

DRUGS (1)
  1. COSENTYX [Suspect]
     Active Substance: SECUKINUMAB
     Indication: PSORIASIS
     Route: 058
     Dates: start: 201805

REACTIONS (7)
  - Pruritus genital [Recovering/Resolving]
  - Muscle spasms [Unknown]
  - Bite [Recovering/Resolving]
  - Pain in extremity [Recovering/Resolving]
  - Contusion [Unknown]
  - Psoriasis [Unknown]
  - Erythema [Unknown]
